FAERS Safety Report 16978173 (Version 2)
Quarter: 2021Q3

REPORT INFORMATION
  Report Type: Report from Study
  Country: US (occurrence: US)
  Receive Date: 20191031
  Receipt Date: 20210803
  Transmission Date: 20211014
  Serious: Yes (Other)
  Sender: FDA-Public Use
  Company Number: NVSC2019US011422

PATIENT
  Age: 32 Year
  Sex: Female

DRUGS (1)
  1. ARZERRA [Suspect]
     Active Substance: OFATUMUMAB
     Indication: PRODUCT USED FOR UNKNOWN INDICATION
     Dosage: 1030 ML, QD
     Route: 042
     Dates: start: 20180910, end: 20191003

REACTIONS (6)
  - Throat tightness [Unknown]
  - Hypersensitivity [Recovered/Resolved]
  - Chills [Unknown]
  - Conjunctivitis [Unknown]
  - Speech disorder [Unknown]
  - Rash [Recovered/Resolved]

NARRATIVE: CASE EVENT DATE: 20191003
